FAERS Safety Report 4685913-8 (Version None)
Quarter: 2005Q2

REPORT INFORMATION
  Report Type: 
  Country: None (occurrence: None)
  Receive Date: 20050609
  Receipt Date: 20050531
  Transmission Date: 20051028
  Serious: Yes (Hospitalization)
  Sender: FDA-Public Use
  Company Number: BE-ABBOTT-05P-013-0302059-00

PATIENT
  Sex: Female

DRUGS (3)
  1. HUMIRA [Suspect]
     Indication: RHEUMATOID ARTHRITIS
     Route: 058
     Dates: start: 20050101
  2. SOTALOL HCL [Concomitant]
     Indication: ARRHYTHMIA
     Route: 048
  3. HALOPERIDOL [Concomitant]
     Indication: SLEEP DISORDER
     Route: 048

REACTIONS (1)
  - THYROIDITIS [None]
